FAERS Safety Report 16358691 (Version 2)
Quarter: 2019Q2

REPORT INFORMATION
  Report Type: Spontaneous
  Country: RU (occurrence: RU)
  Receive Date: 20190527
  Receipt Date: 20190528
  Transmission Date: 20190711
  Serious: Yes (Death)
  Sender: FDA-Public Use
  Company Number: RU-ELI_LILLY_AND_COMPANY-RU201905012522

PATIENT
  Age: 45 Year
  Sex: Male

DRUGS (5)
  1. CISPLATIN. [Concomitant]
     Active Substance: CISPLATIN
     Dosage: 180 MG, EVERY 3 WEEKS
     Route: 065
     Dates: start: 20180411
  2. ERBITUX [Suspect]
     Active Substance: CETUXIMAB
     Dosage: 500 MG, WEEKLY (1/W)
     Route: 065
     Dates: start: 20180418, end: 20180627
  3. CISPLATIN. [Concomitant]
     Active Substance: CISPLATIN
     Indication: LARYNGEAL CANCER RECURRENT
     Dosage: 120 MG, UNK
     Route: 065
     Dates: start: 201706, end: 201707
  4. ERBITUX [Suspect]
     Active Substance: CETUXIMAB
     Indication: LARYNGEAL CANCER RECURRENT
     Dosage: 800 MG, UNK
     Route: 065
     Dates: start: 20180411
  5. 5-FLUOROURACIL [FLUOROURACIL] [Concomitant]
     Active Substance: FLUOROURACIL
     Indication: LARYNGEAL CANCER RECURRENT
     Dosage: 8000 MG, EVERY 3 WEEKS
     Route: 042
     Dates: start: 20180411, end: 20180613

REACTIONS (3)
  - Neoplasm recurrence [Fatal]
  - Arterial haemorrhage [Fatal]
  - General physical health deterioration [Fatal]

NARRATIVE: CASE EVENT DATE: 2018
